FAERS Safety Report 4946714-6 (Version None)
Quarter: 2006Q1

REPORT INFORMATION
  Report Type: 
  Country: None (occurrence: None)
  Receive Date: 20060317
  Receipt Date: 20050829
  Transmission Date: 20060701
  Serious: Yes (Hospitalization)
  Sender: FDA-Public Use
  Company Number: US-MERCK-0508USA05038

PATIENT
  Age: 76 Year
  Sex: Male
  Weight: 87 kg

DRUGS (14)
  1. VIOXX [Suspect]
     Indication: PAIN
     Route: 048
     Dates: start: 20000606
  2. VIOXX [Suspect]
     Route: 048
     Dates: start: 20010101, end: 20010901
  3. VIOXX [Suspect]
     Indication: ARTHRITIS
     Route: 048
     Dates: start: 20000606
  4. VIOXX [Suspect]
     Route: 048
     Dates: start: 20010101, end: 20010901
  5. DYAZIDE [Concomitant]
     Route: 048
  6. ATENOLOL [Concomitant]
     Route: 048
  7. PROCARDIA XL [Concomitant]
     Route: 048
     Dates: end: 20010901
  8. PROCARDIA XL [Concomitant]
     Route: 048
     Dates: start: 20010901
  9. ZOCOR [Concomitant]
     Route: 048
     Dates: end: 20010101
  10. PRILOSEC [Concomitant]
     Indication: PROPHYLAXIS
     Route: 048
     Dates: start: 20000606, end: 20010101
  11. CELEBREX [Concomitant]
     Indication: OSTEOARTHRITIS
     Route: 065
  12. CELEBREX [Concomitant]
     Route: 065
     Dates: start: 20000901, end: 20000101
  13. CELEBREX [Concomitant]
     Indication: ARTHRALGIA
     Route: 065
  14. CELEBREX [Concomitant]
     Route: 065
     Dates: start: 20000901, end: 20000101

REACTIONS (20)
  - ACUTE MYOCARDIAL INFARCTION [None]
  - ANGINA UNSTABLE [None]
  - ASTHMA [None]
  - CAROTID ARTERY STENOSIS [None]
  - CHRONIC OBSTRUCTIVE PULMONARY DISEASE [None]
  - CONSTIPATION [None]
  - CORONARY ARTERY DISEASE [None]
  - DRUG INEFFECTIVE [None]
  - DYSPEPSIA [None]
  - EAR INFECTION [None]
  - GASTROOESOPHAGEAL REFLUX DISEASE [None]
  - GLUCOSE TOLERANCE IMPAIRED [None]
  - HEADACHE [None]
  - MUSCULOSKELETAL DISCOMFORT [None]
  - MYALGIA [None]
  - PAIN [None]
  - PNEUMONIA [None]
  - RASH [None]
  - TRANSIENT ISCHAEMIC ATTACK [None]
  - VENTRICULAR TACHYCARDIA [None]
